FAERS Safety Report 8571326 (Version 3)
Quarter: 2012Q4

REPORT INFORMATION
  Report Type: 
  Country: CH (occurrence: CH)
  Receive Date: 20120521
  Receipt Date: 20120928
  Transmission Date: 20130627
  Serious: Yes (Other)
  Sender: FDA-Public Use
  Company Number: PHHY2012CH039951

PATIENT
  Age: 49 None
  Sex: Female

DRUGS (1)
  1. GILENYA [Suspect]
     Dosage: 0.5 mg, daily
     Route: 048
     Dates: start: 20111017

REACTIONS (5)
  - Cardiac fibrillation [Unknown]
  - Ventricular tachycardia [Unknown]
  - Tachycardia [Unknown]
  - Vertigo [Unknown]
  - Palpitations [Unknown]
